FAERS Safety Report 24854543 (Version 2)
Quarter: 2025Q1

REPORT INFORMATION
  Report Type: Spontaneous
  Country: JP (occurrence: JP)
  Receive Date: 20250117
  Receipt Date: 20250124
  Transmission Date: 20250408
  Serious: No
  Sender: ROCHE
  Company Number: JP-CHUGAI-2024045527

PATIENT
  Age: 6 Decade
  Sex: Male

DRUGS (1)
  1. ROZLYTREK [Suspect]
     Active Substance: ENTRECTINIB
     Indication: Non-small cell lung cancer
     Dosage: 600 MILLIGRAM, QD
     Route: 050

REACTIONS (2)
  - Troponin increased [Unknown]
  - Electrocardiogram T wave inversion [Unknown]
